FAERS Safety Report 12347342 (Version 1)
Quarter: 2016Q2

REPORT INFORMATION
  Report Type: Spontaneous
  Country: US (occurrence: US)
  Receive Date: 20160509
  Receipt Date: 20160509
  Transmission Date: 20160815
  Serious: No
  Sender: FDA-Public Use
  Company Number: US-MEDA-2016040035

PATIENT
  Age: 76 Year
  Sex: Male
  Weight: 102 kg

DRUGS (5)
  1. LEVOTHYROXINE. [Concomitant]
     Active Substance: LEVOTHYROXINE
     Indication: THYROID DISORDER
  2. SIMVASTATIN. [Concomitant]
     Active Substance: SIMVASTATIN
     Indication: BLOOD CHOLESTEROL INCREASED
  3. MUSE [Suspect]
     Active Substance: ALPROSTADIL
     Indication: ERECTILE DYSFUNCTION
     Route: 066
     Dates: start: 20160409
  4. VITAMIN D [Concomitant]
     Active Substance: CHOLECALCIFEROL
  5. ESBRIET [Concomitant]
     Active Substance: PIRFENIDONE
     Indication: PULMONARY FIBROSIS

REACTIONS (4)
  - Drug ineffective [Unknown]
  - Musculoskeletal discomfort [Recovered/Resolved]
  - Penile haemorrhage [Recovered/Resolved]
  - Wrong technique in product usage process [Recovered/Resolved]

NARRATIVE: CASE EVENT DATE: 20160409
